FAERS Safety Report 10509375 (Version 3)
Quarter: 2014Q4

REPORT INFORMATION
  Report Type: Report from Study
  Country: ES (occurrence: ES)
  Receive Date: 20141009
  Receipt Date: 20141123
  Transmission Date: 20150528
  Serious: Yes (Hospitalization, Other)
  Sender: FDA-Public Use
  Company Number: PHHY2014ES122607

PATIENT
  Age: 70 Year
  Sex: Female
  Weight: 40 kg

DRUGS (4)
  1. LDK378 [Suspect]
     Active Substance: CERITINIB
     Indication: LUNG NEOPLASM MALIGNANT
     Dosage: 750 MG, QD
     Route: 048
     Dates: start: 20140804, end: 20140918
  2. LDK378 [Suspect]
     Active Substance: CERITINIB
     Dosage: 750 MG, QD
     Route: 048
  3. LEVETIRACETAM. [Concomitant]
     Active Substance: LEVETIRACETAM
     Indication: PRODUCT USED FOR UNKNOWN INDICATION
     Dosage: 750 MG, Q12H
     Route: 065
     Dates: end: 2012
  4. ASA [Concomitant]
     Active Substance: ASPIRIN
     Indication: PRODUCT USED FOR UNKNOWN INDICATION
     Dosage: 300 MG, Q12H
     Route: 065
     Dates: end: 2012

REACTIONS (4)
  - Adrenal insufficiency [Unknown]
  - Respiratory failure [Recovered/Resolved]
  - Cardiac failure [Recovered/Resolved]
  - Pneumonia [Not Recovered/Not Resolved]

NARRATIVE: CASE EVENT DATE: 20140918
